FAERS Safety Report 8530881-1 (Version None)
Quarter: 2012Q3

REPORT INFORMATION
  Report Type: 
  Country: None (occurrence: None)
  Receive Date: 20120723
  Receipt Date: 20120712
  Transmission Date: 20120928
  Serious: Yes (Other)
  Sender: FDA-Public Use
  Company Number: JP-ASTRAZENECA-2012SE48533

PATIENT
  Age: 84 Year
  Sex: Female

DRUGS (9)
  1. ALDACTONE [Concomitant]
     Route: 048
  2. SENNOSIDE [Concomitant]
     Route: 048
  3. ZOLPIDEM [Suspect]
     Indication: INSOMNIA
     Route: 048
  4. WARFARIN SODIUM [Concomitant]
     Route: 048
  5. SEROQUEL [Suspect]
     Dosage: 25 MG DAILY BEFORE BEDTIME
     Route: 048
     Dates: end: 20120709
  6. DIART [Concomitant]
  7. CLOTIAZEPAM [Concomitant]
     Route: 048
  8. ETIZOLAM EMEC [Concomitant]
  9. CANDESARTAN CILEXETIL [Concomitant]

REACTIONS (2)
  - INTENTIONAL DRUG MISUSE [None]
  - PULMONARY EMBOLISM [None]
